FAERS Safety Report 8842399 (Version 2)
Quarter: 2012Q4

REPORT INFORMATION
  Report Type: 
  Country: BR (occurrence: BR)
  Receive Date: 20121016
  Receipt Date: 20121106
  Transmission Date: 20130627
  Serious: Yes (Other)
  Sender: FDA-Public Use
  Company Number: BR-ROCHE-1081946

PATIENT
  Sex: Female
  Weight: 70 kg

DRUGS (1)
  1. BONVIVA [Suspect]
     Indication: OSTEITIS DEFORMANS
     Route: 065
     Dates: start: 2009, end: 2012

REACTIONS (7)
  - Osteonecrosis of jaw [Not Recovered/Not Resolved]
  - Pulmonary embolism [Recovered/Resolved with Sequelae]
  - Impaired healing [Unknown]
  - Gingival inflammation [Unknown]
  - Bronchopneumonia [Unknown]
  - Tooth infection [Unknown]
  - Impaired healing [Not Recovered/Not Resolved]
